FAERS Safety Report 19180201 (Version 1)
Quarter: 2021Q2

REPORT INFORMATION
  Report Type: Spontaneous
  Country: US (occurrence: US)
  Receive Date: 20210426
  Receipt Date: 20210426
  Transmission Date: 20210717
  Serious: Yes (Hospitalization)
  Sender: FDA-Public Use
  Company Number: None

PATIENT
  Age: 66 Year
  Sex: Male
  Weight: 80 kg

DRUGS (1)
  1. BAMLANIVIMAB ETESEVIMAB [Suspect]
     Active Substance: BAMLANIVIMAB\ETESEVIMAB
     Indication: COVID-19
     Dosage: ?          OTHER FREQUENCY:ONCE;?
     Route: 042
     Dates: start: 20210415, end: 20210415

REACTIONS (7)
  - Acute respiratory failure [None]
  - Condition aggravated [None]
  - Fibrin D dimer increased [None]
  - Feeding disorder [None]
  - Asthenia [None]
  - Lung infiltration [None]
  - Pneumonia viral [None]

NARRATIVE: CASE EVENT DATE: 20210421
